FAERS Safety Report 7944900-4 (Version None)
Quarter: 2011Q4

REPORT INFORMATION
  Report Type: 
  Country: None (occurrence: None)
  Receive Date: 20111122
  Receipt Date: 20110727
  Transmission Date: 20120403
  Serious: No
  Sender: FDA-Public Use
  Company Number: PHHY2011US55694

PATIENT
  Age: 51 Year
  Sex: Female

DRUGS (17)
  1. LOTENSIN [Concomitant]
  2. COREG [Concomitant]
  3. ULTRACET [Concomitant]
  4. CYMBALTA [Concomitant]
  5. BENAZEPLUS (BENAZEPRIL HYDROCHLORIDE, HYDROCHLOROTHIAZIDE) [Concomitant]
  6. NEXIUM [Concomitant]
  7. GILENYA [Suspect]
     Indication: MULTIPLE SCLEROSIS
     Dosage: 0.5 MG, QD, ORAL
     Route: 048
     Dates: start: 20110609
  8. SYNTHROID [Concomitant]
  9. LYRICA [Concomitant]
  10. METANX (FOLIC ACID, L-METHYLFOLATE, MECOBALAMIN, PYRIDOXINE) [Concomitant]
  11. CALCIUM CARBONATE [Concomitant]
  12. ROBAXIN [Concomitant]
  13. GLUCOPHAGE [Concomitant]
  14. SYNTHROID [Concomitant]
  15. ZOCOR [Concomitant]
  16. ESTRADIOL [Concomitant]
  17. ALPHA LIPOIC ACID (THIOCTIC ACID) [Concomitant]

REACTIONS (9)
  - DIZZINESS [None]
  - FALL [None]
  - HYPERCHLORHYDRIA [None]
  - OEDEMA PERIPHERAL [None]
  - HEADACHE [None]
  - NAUSEA [None]
  - DYSGEUSIA [None]
  - PAIN IN EXTREMITY [None]
  - BACK PAIN [None]
